FAERS Safety Report 18126383 (Version 1)
Quarter: 2020Q3

REPORT INFORMATION
  Report Type: Spontaneous
  Country: US (occurrence: US)
  Receive Date: 20200808
  Receipt Date: 20200808
  Transmission Date: 20201103
  Serious: No
  Sender: FDA-Public Use
  Company Number: US-SA-2020SA198689

PATIENT

DRUGS (6)
  1. REVLIMID [Concomitant]
     Active Substance: LENALIDOMIDE
     Indication: PLASMA CELL MYELOMA
     Dosage: 20 MG, QD
     Route: 048
     Dates: start: 201603
  2. REVLIMID [Concomitant]
     Active Substance: LENALIDOMIDE
     Dosage: 15 MG, QD
     Route: 048
     Dates: start: 201801
  3. ERYTHROMYCIN. [Suspect]
     Active Substance: ERYTHROMYCIN
     Indication: PULMONARY MASS
     Dosage: UNK
     Dates: start: 202002, end: 202004
  4. REVLIMID [Concomitant]
     Active Substance: LENALIDOMIDE
     Dosage: 15 MG; 21 IN 21 DAYS
     Route: 048
     Dates: start: 201808
  5. ETHAMBUTOL [Concomitant]
     Active Substance: ETHAMBUTOL HYDROCHLORIDE
     Indication: PULMONARY MASS
     Dosage: UNK
     Dates: start: 202002, end: 202004
  6. RIFAMPICIN [Suspect]
     Active Substance: RIFAMPIN
     Indication: PULMONARY MASS
     Dosage: UNK
     Dates: start: 202002, end: 202004

REACTIONS (2)
  - Decreased appetite [Unknown]
  - Pulmonary mass [Unknown]

NARRATIVE: CASE EVENT DATE: 202002
